APPROVED DRUG PRODUCT: OXYCODONE HYDROCHLORIDE
Active Ingredient: OXYCODONE HYDROCHLORIDE
Strength: 100MG/5ML
Dosage Form/Route: SOLUTION;ORAL
Application: A208593 | Product #002 | TE Code: AA
Applicant: ABHAI LLC
Approved: Jul 21, 2017 | RLD: No | RS: No | Type: RX